FAERS Safety Report 9040196 (Version 1)
Quarter: 2013Q1

REPORT INFORMATION
  Report Type: Report from Study
  Country: US (occurrence: US)
  Receive Date: 20130129
  Receipt Date: 20130129
  Transmission Date: 20140127
  Serious: No
  Sender: FDA-Public Use
  Company Number: US-ABBOTT-11P-163-0847868-00

PATIENT
  Age: 48 Year
  Sex: Female

DRUGS (14)
  1. HUMIRA 40 MG/0.8 ML PEN [Suspect]
     Indication: CROHN^S DISEASE
     Dates: start: 20110711, end: 20111213
  2. METHODONE [Concomitant]
     Indication: SPINAL PAIN
     Dosage: 60MG IN AM AND 50MG IN PM
  3. METHODONE [Concomitant]
     Indication: SPINAL PAIN
  4. METHODONE [Concomitant]
     Indication: ARTHRALGIA
  5. PLAQUENIL [Concomitant]
     Indication: ARTHRALGIA
     Dosage: AT NIGHT, DAILY
  6. MOBIC [Concomitant]
     Indication: ARTHRITIS
  7. ACIPHEX [Concomitant]
     Indication: GASTROOESOPHAGEAL REFLUX DISEASE
  8. ACIPHEX [Concomitant]
     Indication: GASTROOESOPHAGEAL REFLUX DISEASE
  9. ASACOL [Concomitant]
     Indication: CROHN^S DISEASE
     Dosage: 3 TABLETS IN THE AM AND 3 TABLETS IN PM
  10. CIPRO [Concomitant]
     Indication: INFECTION
  11. FLAGYL [Concomitant]
     Indication: INFECTION
     Dates: start: 201101
  12. DILAUDID [Concomitant]
     Indication: CROHN^S DISEASE
  13. DILAUDID [Concomitant]
     Indication: PAIN
  14. IMITREX [Concomitant]
     Indication: MIGRAINE
     Dosage: 150 MG 1 OR 2 TABLETS PRN

REACTIONS (8)
  - Headache [Not Recovered/Not Resolved]
  - Fatigue [Not Recovered/Not Resolved]
  - Influenza like illness [Unknown]
  - Influenza like illness [Unknown]
  - Influenza like illness [Unknown]
  - Migraine [Unknown]
  - Headache [Unknown]
  - Migraine [Not Recovered/Not Resolved]
